FAERS Safety Report 10755001 (Version 4)
Quarter: 2015Q1

REPORT INFORMATION
  Report Type: Report from Study
  Country: AT (occurrence: AT)
  Receive Date: 20150202
  Receipt Date: 20150316
  Transmission Date: 20150721
  Serious: Yes (Hospitalization)
  Sender: FDA-Public Use
  Company Number: AT-AMGEN-AUTNI2015008112

PATIENT
  Age: 71 Year
  Sex: Female

DRUGS (9)
  1. FEMARA [Concomitant]
     Active Substance: LETROZOLE
     Indication: BREAST CANCER
     Dosage: 2.5 MG, QD
     Route: 048
     Dates: start: 20150119
  2. MAXI KALZ [Concomitant]
     Dosage: UNK UNK, QD
     Route: 048
     Dates: start: 20141217
  3. VITAMIN D3 [Concomitant]
     Active Substance: CHOLECALCIFEROL
     Dosage: 1 DF, QD
     Route: 048
     Dates: start: 20141217
  4. SIRDALUD [Concomitant]
     Active Substance: TIZANIDINE
     Dosage: 6 MG, QD
     Route: 048
     Dates: start: 20150124
  5. PARACETAMOL [Concomitant]
     Active Substance: ACETAMINOPHEN
     Dosage: 100 ML, BID
     Route: 042
     Dates: start: 20150124
  6. DENOSUMAB [Suspect]
     Active Substance: DENOSUMAB
     Indication: METASTASES TO BONE
     Dosage: 120 MG, Q4WK
     Route: 058
     Dates: start: 20141217
  7. GLUCOPHAGE S [Concomitant]
     Dosage: 500 MG, BID
     Route: 048
     Dates: start: 2013
  8. NOAX UNO [Concomitant]
     Dosage: 100 MG, QD
     Route: 048
     Dates: start: 20150127
  9. ACEMIN                             /00011902/ [Concomitant]
     Dosage: 2.5 MG, QD
     Route: 048
     Dates: start: 20150128

REACTIONS (3)
  - Ligament sprain [Recovered/Resolved]
  - Dyspnoea [Recovered/Resolved]
  - Spinal pain [Not Recovered/Not Resolved]

NARRATIVE: CASE EVENT DATE: 20150123
